FAERS Safety Report 7982375 (Version 2)
Quarter: 2012Q4

REPORT INFORMATION
  Report Type: 
  Country: CA (occurrence: CA)
  Receive Date: 20110609
  Receipt Date: 20121106
  Transmission Date: 20130627
  Serious: Yes (Other)
  Sender: FDA-Public Use
  Company Number: PHHY2008CA33660

PATIENT
  Sex: Female

DRUGS (2)
  1. SANDOSTATIN LAR [Suspect]
     Indication: ANGIODYSPLASIA
     Dosage: 20 mg, QMO
     Route: 030
     Dates: start: 20071201
  2. ACTONEL [Concomitant]
     Dosage: 1 DF, QW

REACTIONS (3)
  - Blood pressure increased [Recovering/Resolving]
  - Heart rate increased [Unknown]
  - Diarrhoea [Unknown]
